FAERS Safety Report 6481019-6 (Version None)
Quarter: 2009Q4

REPORT INFORMATION
  Report Type: 
  Country: None (occurrence: None)
  Receive Date: 20091208
  Receipt Date: 20091124
  Transmission Date: 20100525
  Serious: Yes (Other)
  Sender: FDA-Public Use
  Company Number: B0612605A

PATIENT
  Age: 33 Year
  Sex: Female

DRUGS (1)
  1. ACITRETIN [Suspect]
     Indication: PLACENTA PRAEVIA HAEMORRHAGE

REACTIONS (4)
  - DRUG ADMINISTRATION ERROR [None]
  - DRUG EXPOSURE DURING PREGNANCY [None]
  - INCORRECT DOSE ADMINISTERED [None]
  - LIVE BIRTH [None]
